FAERS Safety Report 4759928-5 (Version None)
Quarter: 2005Q3

REPORT INFORMATION
  Report Type: 
  Country: None (occurrence: None)
  Receive Date: 20050902
  Receipt Date: 20050825
  Transmission Date: 20060218
  Serious: Yes (Hospitalization)
  Sender: FDA-Public Use
  Company Number: DE-ABBOTT-05P-062-0309601-00

PATIENT
  Sex: Male
  Weight: 75 kg

DRUGS (2)
  1. KLACID FILMTABLETTEN [Suspect]
     Indication: SUICIDE ATTEMPT
     Route: 048
     Dates: start: 20050825, end: 20050825
  2. BUSCOPAN PLUS [Suspect]
     Indication: SUICIDE ATTEMPT
     Dosage: 200MG/10.000MG
     Route: 048
     Dates: start: 20050825, end: 20050825

REACTIONS (2)
  - SUICIDE ATTEMPT [None]
  - VOMITING [None]
